FAERS Safety Report 8826626 (Version 1)
Quarter: 2012Q4

REPORT INFORMATION
  Report Type: 
  Country: UA (occurrence: UA)
  Receive Date: 20121005
  Receipt Date: 20121005
  Transmission Date: 20130627
  Serious: Yes (Disabling)
  Sender: FDA-Public Use
  Company Number: UA-ABBOTT-12P-269-0988687-00

PATIENT
  Age: 40 Year
  Sex: Female

DRUGS (1)
  1. TRANDOLAPRIL/VERAPAMIL [Suspect]
     Indication: ESSENTIAL HYPERTENSION
     Dosage: 2/180 mg 1 tablet per day
     Route: 048
     Dates: start: 201203, end: 20120921

REACTIONS (3)
  - Hyperaemia [Recovered/Resolved]
  - Tachycardia [Recovered/Resolved]
  - Nasal congestion [Recovered/Resolved]
